FAERS Safety Report 22271386 (Version 7)
Quarter: 2023Q4

REPORT INFORMATION
  Report Type: Spontaneous
  Country: JP (occurrence: JP)
  Receive Date: 20230501
  Receipt Date: 20231207
  Transmission Date: 20240109
  Serious: Yes (Death, Other)
  Sender: FDA-Public Use
  Company Number: JP-002147023-NVSJ2023JP007111

PATIENT
  Age: 64 Year
  Sex: Male
  Weight: 72 kg

DRUGS (9)
  1. TAFINLAR [Suspect]
     Active Substance: DABRAFENIB MESYLATE
     Indication: Non-small cell lung cancer
     Dosage: 150 MG, BID
     Route: 048
     Dates: start: 20230404, end: 20230423
  2. MEKINIST [Suspect]
     Active Substance: TRAMETINIB DIMETHYL SULFOXIDE
     Indication: Non-small cell lung cancer
     Dosage: 2 MG, QD
     Route: 048
     Dates: start: 20230404, end: 20230423
  3. OXYCODONE [Concomitant]
     Active Substance: OXYCODONE
     Indication: Cancer pain
     Dosage: 5 MG, BID
     Route: 048
     Dates: start: 20230318
  4. OXYCODONE [Concomitant]
     Active Substance: OXYCODONE
     Dosage: 50 MG
     Route: 048
     Dates: end: 20230403
  5. OXYCODONE [Concomitant]
     Active Substance: OXYCODONE
     Dosage: 60 MG
     Route: 048
     Dates: start: 20230404, end: 20230409
  6. OXYCODONE [Concomitant]
     Active Substance: OXYCODONE
     Dosage: 80 MG
     Route: 048
     Dates: start: 20230410, end: 20230416
  7. OXYCODONE [Concomitant]
     Active Substance: OXYCODONE
     Dosage: UNK
     Route: 048
     Dates: end: 20230423
  8. CALCIUM CARBONATE\CHOLECALCIFEROL\MAGNESIUM CARBONATE [Concomitant]
     Active Substance: CALCIUM CARBONATE\CHOLECALCIFEROL\MAGNESIUM CARBONATE
     Indication: Metastases to bone
     Dosage: 2 DOSAGE FORM, QD
     Route: 048
     Dates: start: 20230325, end: 20230423
  9. PREGABALIN [Concomitant]
     Active Substance: PREGABALIN
     Indication: Hypoaesthesia
     Dosage: 25 MG, TID
     Route: 048
     Dates: start: 20230326, end: 20230423

REACTIONS (4)
  - Infectious pleural effusion [Fatal]
  - Dyspnoea [Fatal]
  - Non-small cell lung cancer [Fatal]
  - Pneumonia [Unknown]

NARRATIVE: CASE EVENT DATE: 20230424
